FAERS Safety Report 25718156 (Version 1)
Quarter: 2025Q3

REPORT INFORMATION
  Report Type: Report from Study
  Country: CA (occurrence: CA)
  Receive Date: 20250823
  Receipt Date: 20250823
  Transmission Date: 20251021
  Serious: Yes (Hospitalization, Other)
  Sender: CELLTRION
  Company Number: CA-CELLTRION INC.-2025CA022969

PATIENT

DRUGS (8)
  1. INFLIXIMAB-DYYB [Suspect]
     Active Substance: INFLIXIMAB-DYYB
     Indication: Crohn^s disease
     Route: 042
     Dates: start: 20250626
  2. INFLIXIMAB-DYYB [Suspect]
     Active Substance: INFLIXIMAB-DYYB
     Route: 042
     Dates: start: 20250709
  3. BUPROPION [Concomitant]
     Active Substance: BUPROPION
     Indication: Product used for unknown indication
     Route: 065
  4. BISOPROLOL [Concomitant]
     Active Substance: BISOPROLOL
     Indication: Product used for unknown indication
     Route: 065
  5. PRAZOSIN [Concomitant]
     Active Substance: PRAZOSIN
     Indication: Product used for unknown indication
     Route: 065
  6. DAYVIGO [Concomitant]
     Active Substance: LEMBOREXANT
     Indication: Product used for unknown indication
     Route: 065
  7. CALCIUM [Concomitant]
     Active Substance: CALCIUM
     Indication: Product used for unknown indication
     Route: 065
  8. DILAUDID [Concomitant]
     Active Substance: HYDROMORPHONE HYDROCHLORIDE
     Indication: Pain
     Route: 065

REACTIONS (6)
  - Crohn^s disease [Not Recovered/Not Resolved]
  - Abdominal pain [Unknown]
  - Infusion related reaction [Recovered/Resolved]
  - Product dose omission issue [Unknown]
  - Intentional dose omission [Unknown]
  - Inappropriate schedule of product administration [Unknown]

NARRATIVE: CASE EVENT DATE: 20250626
